FAERS Safety Report 11452071 (Version 3)
Quarter: 2018Q2

REPORT INFORMATION
  Report Type: Spontaneous
  Country: ES (occurrence: ES)
  Receive Date: 20150903
  Receipt Date: 20180511
  Transmission Date: 20180711
  Serious: Yes (Life-Threatening, Hospitalization, Other)
  Sender: FDA-Public Use
  Company Number: PHHY2015ES104669

PATIENT
  Sex: Male
  Weight: 1.16 kg

DRUGS (6)
  1. MEROPENEM. [Concomitant]
     Active Substance: MEROPENEM
     Indication: KLEBSIELLA INFECTION
     Route: 065
  2. TRIMETHOPRIM SULFAMETHOXAZOLE [Concomitant]
     Active Substance: SULFAMETHOXAZOLE\TRIMETHOPRIM
     Indication: STENOTROPHOMONAS INFECTION
     Dosage: 5 MG/KG, UNK
     Route: 065
  3. SULFAMETHOXAZOLE AND TRIMETHOPRIM [Concomitant]
     Active Substance: SULFAMETHOXAZOLE\TRIMETHOPRIM
     Indication: STENOTROPHOMONAS INFECTION
     Dosage: 5 MG/KG, UNK
     Route: 065
  4. LEVOFLOXACIN. [Suspect]
     Active Substance: LEVOFLOXACIN
     Indication: PNEUMONIA
     Dosage: 8.5 MG/KG, BID
     Route: 065
  5. DOPAMINE [Concomitant]
     Active Substance: DOPAMINE\DOPAMINE HYDROCHLORIDE
     Indication: SEPTIC SHOCK
     Dosage: 10 UG/KG/MIN, UNK
     Route: 065
  6. DOPAMINE [Concomitant]
     Active Substance: DOPAMINE\DOPAMINE HYDROCHLORIDE
     Dosage: 20 UG/KG/MIN, UNK
     Route: 065

REACTIONS (3)
  - Shock [Recovered/Resolved]
  - Off label use [Unknown]
  - Distributive shock [Recovered/Resolved]
